FAERS Safety Report 7364632-3 (Version None)
Quarter: 2011Q1

REPORT INFORMATION
  Report Type: 
  Country: None (occurrence: None)
  Receive Date: 20110315
  Receipt Date: 20110315
  Transmission Date: 20110831
  Serious: Yes (Life-Threatening, Hospitalization, Disabling)
  Sender: FDA-Public Use
  Company Number: None

PATIENT
  Sex: Female
  Weight: 123.3 kg

DRUGS (8)
  1. METOPROLOL [Concomitant]
  2. LASIX [Concomitant]
  3. ZOSYN [Concomitant]
  4. DILTIAZEM [Concomitant]
  5. VANCOMYCIN [Concomitant]
  6. PRADAXA [Suspect]
     Indication: ATRIAL FIBRILLATION
     Dosage: 150 MG BID PO
     Route: 048
     Dates: start: 20101201, end: 20110126
  7. PRONTIX [Concomitant]
  8. LANTUS [Concomitant]

REACTIONS (12)
  - MENTAL STATUS CHANGES [None]
  - NAUSEA [None]
  - HAEMATEMESIS [None]
  - CARDIAC ARREST [None]
  - INTERNATIONAL NORMALISED RATIO INCREASED [None]
  - SOMNOLENCE [None]
  - SLUGGISHNESS [None]
  - HAEMATOCRIT DECREASED [None]
  - UNRESPONSIVE TO STIMULI [None]
  - LETHARGY [None]
  - BLOOD UREA INCREASED [None]
  - BLOOD CREATININE INCREASED [None]
